FAERS Safety Report 16307935 (Version 2)
Quarter: 2019Q4

REPORT INFORMATION
  Report Type: Spontaneous
  Country: IT (occurrence: IT)
  Receive Date: 20190514
  Receipt Date: 20191023
  Transmission Date: 20200122
  Serious: Yes (Other)
  Sender: FDA-Public Use
  Company Number: IT-AUROBINDO-AUR-APL-2019-025382

PATIENT
  Age: 50 Year
  Sex: Female

DRUGS (9)
  1. METHYLPREDNISOLONE. [Concomitant]
     Active Substance: METHYLPREDNISOLONE
     Indication: PRODUCT USED FOR UNKNOWN INDICATION
     Dosage: UNK
     Route: 065
  2. SOFOSBUVIR [Concomitant]
     Active Substance: SOFOSBUVIR
     Indication: PRODUCT USED FOR UNKNOWN INDICATION
     Dosage: UNK
     Route: 065
  3. RIBAVIRIN. [Suspect]
     Active Substance: RIBAVIRIN
     Indication: CHRONIC HEPATITIS C
     Dosage: 200 MILLIGRAM, ONCE A DAY
     Route: 065
  4. RITUXIMAB. [Concomitant]
     Active Substance: RITUXIMAB
     Dosage: UNK
     Route: 065
     Dates: start: 201505
  5. PEGINTERFERON ALFA-2A. [Suspect]
     Active Substance: PEGINTERFERON ALFA-2A
     Indication: CHRONIC HEPATITIS C
     Dosage: 135 MICROGRAM ONCE IN A WEEK
     Route: 065
  6. ILOPROST. [Concomitant]
     Active Substance: ILOPROST
     Indication: PRODUCT USED FOR UNKNOWN INDICATION
     Dosage: UNK
     Route: 042
  7. RITUXIMAB. [Concomitant]
     Active Substance: RITUXIMAB
     Indication: PRODUCT USED FOR UNKNOWN INDICATION
     Dosage: UNK
     Route: 065
     Dates: start: 200911
  8. RIBAVIRIN. [Suspect]
     Active Substance: RIBAVIRIN
     Dosage: 400 MILLIGRAM, DAILY
     Route: 065
     Dates: start: 201506
  9. SIMEPREVIR [Concomitant]
     Active Substance: SIMEPREVIR
     Indication: PRODUCT USED FOR UNKNOWN INDICATION
     Dosage: UNK
     Route: 065

REACTIONS (4)
  - Fatigue [Recovering/Resolving]
  - Anaemia [Recovering/Resolving]
  - Influenza like illness [Unknown]
  - Neuropathy peripheral [Recovering/Resolving]
